FAERS Safety Report 12659724 (Version 2)
Quarter: 2016Q3

REPORT INFORMATION
  Report Type: Report from Study
  Country: AR (occurrence: AR)
  Receive Date: 20160817
  Receipt Date: 20160826
  Transmission Date: 20161109
  Serious: Yes (Other)
  Sender: FDA-Public Use
  Company Number: PHHY2016AR111011

PATIENT
  Sex: Female

DRUGS (3)
  1. T4 [Concomitant]
     Active Substance: LEVOTHYROXINE
     Indication: HYPOTHYROIDISM
     Route: 065
  2. EXJADE [Suspect]
     Active Substance: DEFERASIROX
     Dosage: 625 MG, QD
     Route: 065
  3. EXJADE [Suspect]
     Active Substance: DEFERASIROX
     Indication: THALASSAEMIA BETA
     Dosage: 625 MG, QD
     Route: 065
     Dates: start: 2008

REACTIONS (2)
  - Hepatotoxicity [Recovered/Resolved]
  - Urine calcium increased [Recovering/Resolving]
